FAERS Safety Report 23264523 (Version 1)
Quarter: 2023Q4

REPORT INFORMATION
  Report Type: Spontaneous
  Country: US (occurrence: US)
  Receive Date: 20231205
  Receipt Date: 20231205
  Transmission Date: 20240110
  Serious: No
  Sender: FDA-Public Use
  Company Number: US-SANDOZ-SDZ2023US062703

PATIENT
  Age: 30 Year
  Sex: Female
  Weight: 96.3 kg

DRUGS (1)
  1. ESTRADIOL\NORETHINDRONE ACETATE [Suspect]
     Active Substance: ESTRADIOL\NORETHINDRONE ACETATE
     Indication: Contraception
     Dosage: 1 DF; FORMULATION: TAB
     Route: 048
     Dates: start: 20210425, end: 20220124

REACTIONS (1)
  - Maternal exposure before pregnancy [Unknown]
